FAERS Safety Report 4676701-7 (Version None)
Quarter: 2005Q2

REPORT INFORMATION
  Report Type: 
  Country: None (occurrence: None)
  Receive Date: 20050527
  Receipt Date: 20050119
  Transmission Date: 20051028
  Serious: Yes (Life-Threatening)
  Sender: FDA-Public Use
  Company Number: 2005AP00291

PATIENT
  Age: 28236 Day
  Sex: Female
  Weight: 45.4 kg

DRUGS (13)
  1. IRESSA [Suspect]
     Indication: NON-SMALL CELL LUNG CANCER
     Route: 048
     Dates: start: 20041221, end: 20041229
  2. IRESSA [Suspect]
     Indication: LUNG ADENOCARCINOMA
     Route: 048
     Dates: start: 20041221, end: 20041229
  3. TENORMIN [Concomitant]
     Indication: HYPERTENSION
     Route: 048
  4. SELBEX [Concomitant]
     Indication: PROPHYLAXIS
     Route: 048
     Dates: start: 20041221, end: 20041229
  5. GANATON [Concomitant]
     Indication: NAUSEA
     Route: 048
     Dates: start: 20041225, end: 20041229
  6. NOVAMIN [Concomitant]
     Indication: NAUSEA
     Route: 048
     Dates: start: 20041225, end: 20041229
  7. ENSURE [Concomitant]
     Indication: DECREASED APPETITE
     Route: 048
     Dates: start: 20041228
  8. TWINPAL [Concomitant]
     Indication: DECREASED APPETITE
     Route: 041
     Dates: start: 20041229
  9. NOVOLIN 30R [Concomitant]
     Indication: DIABETES MELLITUS
     Route: 058
  10. ASTOMIN [Concomitant]
     Indication: COUGH
     Route: 048
  11. DIBETON S [Concomitant]
     Indication: DIABETES MELLITUS
     Route: 048
  12. ACECOL [Concomitant]
     Indication: HYPERTENSION
     Route: 048
  13. CARDENALIN [Concomitant]
     Indication: HYPERTENSION
     Route: 048

REACTIONS (14)
  - ANAEMIA [None]
  - ANOREXIA [None]
  - BODY TEMPERATURE INCREASED [None]
  - CARDIAC FAILURE [None]
  - CHEST DISCOMFORT [None]
  - CONSTIPATION [None]
  - DISSEMINATED INTRAVASCULAR COAGULATION [None]
  - FATIGUE [None]
  - HEART RATE INCREASED [None]
  - HYPOXIA [None]
  - LYMPHANGIOSIS CARCINOMATOSA [None]
  - NAUSEA [None]
  - PULMONARY CONGESTION [None]
  - TACHYCARDIA [None]
